FAERS Safety Report 16775124 (Version 1)
Quarter: 2019Q3

REPORT INFORMATION
  Report Type: Spontaneous
  Country: IR (occurrence: IR)
  Receive Date: 20190905
  Receipt Date: 20190905
  Transmission Date: 20191005
  Serious: Yes (Other)
  Sender: FDA-Public Use
  Company Number: IR-LUPIN PHARMACEUTICALS INC.-2019-05669

PATIENT
  Age: 1 Month
  Sex: Female

DRUGS (4)
  1. VANCOMYCIN [Suspect]
     Active Substance: VANCOMYCIN
     Indication: PNEUMONIA
     Dosage: UNK
     Route: 042
  2. CEFOTAXIME [Concomitant]
     Active Substance: CEFOTAXIME SODIUM
     Indication: PNEUMONIA
     Dosage: UNK
     Route: 065
  3. AMPICILLIN [Concomitant]
     Active Substance: AMPICILLIN
     Indication: PNEUMONIA
     Dosage: UNK
     Route: 065
  4. DEXTROSE. [Concomitant]
     Active Substance: DEXTROSE
     Indication: PNEUMONIA
     Dosage: UNK, SERUM
     Route: 065

REACTIONS (3)
  - Infusion site extravasation [Unknown]
  - Skin necrosis [Recovering/Resolving]
  - Infusion site necrosis [Recovering/Resolving]
